FAERS Safety Report 6767503-6 (Version None)
Quarter: 2010Q2

REPORT INFORMATION
  Report Type: 
  Country: None (occurrence: None)
  Receive Date: 20100614
  Receipt Date: 20100602
  Transmission Date: 20101027
  Serious: Yes (Hospitalization)
  Sender: FDA-Public Use
  Company Number: PHFR2010GB00872

PATIENT
  Sex: Male

DRUGS (4)
  1. CLOZARIL [Suspect]
     Indication: SCHIZOPHRENIA
     Dosage: UNK
     Route: 048
     Dates: start: 20030804
  2. CIPROFLOXACIN [Concomitant]
     Dosage: UNK
  3. METRONIDAZOLE [Concomitant]
  4. WARFARIN [Concomitant]

REACTIONS (1)
  - EMPHYSEMA [None]
